FAERS Safety Report 5632996-4 (Version None)
Quarter: 2008Q1

REPORT INFORMATION
  Report Type: 
  Country: None (occurrence: None)
  Receive Date: 20080214
  Receipt Date: 20080206
  Transmission Date: 20080703
  Serious: Yes (Hospitalization)
  Sender: FDA-Public Use
  Company Number: 083-C5013-07081921

PATIENT
  Age: 72 Year
  Sex: Female
  Weight: 50 kg

DRUGS (20)
  1. CC-5013\PLACEBO (LENALIDOMIDE) (CAPSULES) [Suspect]
     Indication: MULTIPLE MYELOMA
     Dosage: 10 MG, DAILY, ORAL; 7.5 MG, DAILY, ORAL; ORAL
     Route: 048
     Dates: start: 20070818, end: 20070831
  2. CC-5013\PLACEBO (LENALIDOMIDE) (CAPSULES) [Suspect]
     Indication: MULTIPLE MYELOMA
     Dosage: 10 MG, DAILY, ORAL; 7.5 MG, DAILY, ORAL; ORAL
     Route: 048
     Dates: start: 20070917, end: 20071001
  3. CC-5013\PLACEBO (LENALIDOMIDE) (CAPSULES) [Suspect]
     Indication: MULTIPLE MYELOMA
     Dosage: 10 MG, DAILY, ORAL; 7.5 MG, DAILY, ORAL; ORAL
     Route: 048
     Dates: start: 20071026, end: 20071103
  4. MELPHALAN (MELPHALAN) [Suspect]
     Indication: MULTIPLE MYELOMA
     Dosage: 10 MG, DAILY, ORAL; 8 MG, DAILY, ORAL; ORAL
     Route: 048
     Dates: start: 20070818, end: 20070820
  5. MELPHALAN (MELPHALAN) [Suspect]
     Indication: MULTIPLE MYELOMA
     Dosage: 10 MG, DAILY, ORAL; 8 MG, DAILY, ORAL; ORAL
     Route: 048
     Dates: start: 20070917, end: 20071001
  6. MELPHALAN (MELPHALAN) [Suspect]
     Indication: MULTIPLE MYELOMA
     Dosage: 10 MG, DAILY, ORAL; 8 MG, DAILY, ORAL; ORAL
     Route: 048
     Dates: start: 20071026, end: 20071103
  7. PREDNISONE TAB [Suspect]
     Indication: IMMUNOSUPPRESSION
     Dosage: 100 MG, DAILY, ORAL; 50 MG, DAILY, ORAL; 25 MG, ORAL; ORAL
     Route: 048
     Dates: start: 20070818, end: 20070820
  8. PREDNISONE TAB [Suspect]
     Indication: MULTIPLE MYELOMA
     Dosage: 100 MG, DAILY, ORAL; 50 MG, DAILY, ORAL; 25 MG, ORAL; ORAL
     Route: 048
     Dates: start: 20070818, end: 20070820
  9. PREDNISONE TAB [Suspect]
     Indication: VASCULITIS
     Dosage: 100 MG, DAILY, ORAL; 50 MG, DAILY, ORAL; 25 MG, ORAL; ORAL
     Route: 048
     Dates: start: 20070818, end: 20070820
  10. PREDNISONE TAB [Suspect]
     Indication: IMMUNOSUPPRESSION
     Dosage: 100 MG, DAILY, ORAL; 50 MG, DAILY, ORAL; 25 MG, ORAL; ORAL
     Route: 048
     Dates: start: 20070831, end: 20070917
  11. PREDNISONE TAB [Suspect]
     Indication: MULTIPLE MYELOMA
     Dosage: 100 MG, DAILY, ORAL; 50 MG, DAILY, ORAL; 25 MG, ORAL; ORAL
     Route: 048
     Dates: start: 20070831, end: 20070917
  12. PREDNISONE TAB [Suspect]
     Indication: VASCULITIS
     Dosage: 100 MG, DAILY, ORAL; 50 MG, DAILY, ORAL; 25 MG, ORAL; ORAL
     Route: 048
     Dates: start: 20070831, end: 20070917
  13. PREDNISONE TAB [Suspect]
     Indication: IMMUNOSUPPRESSION
     Dosage: 100 MG, DAILY, ORAL; 50 MG, DAILY, ORAL; 25 MG, ORAL; ORAL
     Route: 048
     Dates: start: 20070917, end: 20071026
  14. PREDNISONE TAB [Suspect]
     Indication: MULTIPLE MYELOMA
     Dosage: 100 MG, DAILY, ORAL; 50 MG, DAILY, ORAL; 25 MG, ORAL; ORAL
     Route: 048
     Dates: start: 20070917, end: 20071026
  15. PREDNISONE TAB [Suspect]
     Indication: VASCULITIS
     Dosage: 100 MG, DAILY, ORAL; 50 MG, DAILY, ORAL; 25 MG, ORAL; ORAL
     Route: 048
     Dates: start: 20070917, end: 20071026
  16. PREDNISONE TAB [Suspect]
     Indication: IMMUNOSUPPRESSION
     Dosage: 100 MG, DAILY, ORAL; 50 MG, DAILY, ORAL; 25 MG, ORAL; ORAL
     Route: 048
     Dates: start: 20071026, end: 20071103
  17. PREDNISONE TAB [Suspect]
     Indication: MULTIPLE MYELOMA
     Dosage: 100 MG, DAILY, ORAL; 50 MG, DAILY, ORAL; 25 MG, ORAL; ORAL
     Route: 048
     Dates: start: 20071026, end: 20071103
  18. PREDNISONE TAB [Suspect]
     Indication: VASCULITIS
     Dosage: 100 MG, DAILY, ORAL; 50 MG, DAILY, ORAL; 25 MG, ORAL; ORAL
     Route: 048
     Dates: start: 20071026, end: 20071103
  19. ACETYLSALICYLIC ACID SRT [Concomitant]
  20. OMEPRAZOLO (OMEPRAZOLE) [Concomitant]

REACTIONS (9)
  - ANAEMIA [None]
  - GASTRITIS [None]
  - HAEMATOTOXICITY [None]
  - INSOMNIA [None]
  - NEUTROPENIA [None]
  - SYNCOPE VASOVAGAL [None]
  - THROMBOCYTOPENIA [None]
  - VASCULITIS [None]
  - WHITE BLOOD CELL COUNT DECREASED [None]
